FAERS Safety Report 4756082-0 (Version None)
Quarter: 2005Q3

REPORT INFORMATION
  Report Type: 
  Country: None (occurrence: None)
  Receive Date: 20050829
  Receipt Date: 20050829
  Transmission Date: 20060218
  Serious: Yes (Hospitalization)
  Sender: FDA-Public Use
  Company Number: None

PATIENT
  Age: 64 Year
  Sex: Male
  Weight: 112.4921 kg

DRUGS (11)
  1. IRESSA [Suspect]
     Indication: COLON CANCER METASTATIC
     Dosage: 250 MG , PO, QD X 2 WKS
     Route: 048
     Dates: start: 20040412
  2. LEUCOVORIN [Suspect]
     Indication: COLON CANCER METASTATIC
     Dosage: 200 MG/M2 , IV , D1
     Route: 042
     Dates: start: 20040412, end: 20050816
  3. FLUOROURACIL [Suspect]
     Indication: COLON CANCER METASTATIC
     Dosage: 40 MG/M2 , IV , DAY 1
     Route: 042
     Dates: start: 20040412, end: 20050816
  4. FLUOROURACIL [Suspect]
     Indication: COLON CANCER METASTATIC
     Dosage: 2400 MG/M2 , IV , DAYS 1-3
     Route: 042
     Dates: start: 20040412, end: 20050818
  5. AMBIEN [Concomitant]
  6. FOLIC ACID [Concomitant]
  7. LASIX [Concomitant]
  8. ZOFRAN [Concomitant]
  9. CLEOCIN T [Concomitant]
  10. FRAGMIN [Concomitant]
  11. MULTI-VITAMIN [Concomitant]

REACTIONS (6)
  - DEHYDRATION [None]
  - DIARRHOEA [None]
  - FEELING ABNORMAL [None]
  - LOSS OF CONSCIOUSNESS [None]
  - SYNCOPE [None]
  - VENTRICULAR EXTRASYSTOLES [None]
